FAERS Safety Report 16119358 (Version 5)
Quarter: 2020Q1

REPORT INFORMATION
  Report Type: Report from Study
  Country: US (occurrence: US)
  Receive Date: 20190326
  Receipt Date: 20200121
  Transmission Date: 20200409
  Serious: Yes (Other)
  Sender: FDA-Public Use
  Company Number: PHEH2019US012656

PATIENT
  Sex: Female

DRUGS (3)
  1. COSENTYX [Suspect]
     Active Substance: SECUKINUMAB
     Dosage: 300 MG, QMO
     Route: 058
     Dates: start: 20190612
  2. COSENTYX [Suspect]
     Active Substance: SECUKINUMAB
     Dosage: 300 MG, QMO
     Route: 058
  3. COSENTYX [Suspect]
     Active Substance: SECUKINUMAB
     Indication: PSORIASIS
     Dosage: 300 MG, Q4W
     Route: 058
     Dates: start: 20180621

REACTIONS (9)
  - Migraine [Not Recovered/Not Resolved]
  - Pruritus [Unknown]
  - Headache [Recovered/Resolved]
  - Stress [Unknown]
  - Diabetes mellitus [Unknown]
  - Staphylococcal skin infection [Unknown]
  - Panic attack [Recovered/Resolved]
  - Psoriasis [Unknown]
  - Nausea [Recovered/Resolved]
